FAERS Safety Report 6204833-0 (Version None)
Quarter: 2009Q2

REPORT INFORMATION
  Report Type: 
  Country: None (occurrence: None)
  Receive Date: 20090527
  Receipt Date: 20090514
  Transmission Date: 20091009
  Serious: Yes (Hospitalization, Disabling)
  Sender: FDA-Public Use
  Company Number: FR-PFIZER INC-2008027764

PATIENT
  Age: 43 Year

DRUGS (17)
  1. MARAVIROC [Suspect]
     Dosage: 150 MG, 2X/DAY
     Route: 048
     Dates: start: 20080107
  2. ISENTRESS [Suspect]
     Indication: HIV INFECTION
     Route: 048
     Dates: start: 20080317, end: 20080326
  3. PREZISTA [Concomitant]
     Indication: HIV INFECTION
     Route: 048
     Dates: start: 20071116
  4. NORVIR [Concomitant]
     Indication: HIV INFECTION
     Route: 048
     Dates: start: 20071116
  5. PROZAC [Concomitant]
     Indication: DEPRESSION
     Route: 048
     Dates: start: 20071116
  6. SKENAN [Concomitant]
     Indication: NEUROPATHY PERIPHERAL
     Route: 048
     Dates: start: 20071214
  7. ACTISKENAN [Concomitant]
     Route: 048
     Dates: start: 20071214
  8. TAREG [Concomitant]
     Route: 048
     Dates: start: 20080107
  9. SERETIDE [Concomitant]
     Route: 055
     Dates: start: 20080225
  10. TOCOPHEROL CONCENTRATE CAP [Concomitant]
     Route: 048
     Dates: start: 20080107
  11. MULTI-VITAMINS [Concomitant]
     Route: 048
     Dates: start: 20080107
  12. SELENIUM [Concomitant]
     Route: 048
     Dates: start: 20080107
  13. BEFLAVINE [Concomitant]
     Route: 048
     Dates: start: 20080107
  14. CHONDROSULF [Concomitant]
     Route: 048
     Dates: start: 20071116
  15. LYRICA [Concomitant]
     Route: 048
     Dates: start: 20070307
  16. VENTOLIN [Concomitant]
     Route: 055
     Dates: start: 20011204
  17. FUZEON [Concomitant]
     Route: 058
     Dates: start: 20071130, end: 20080317

REACTIONS (2)
  - CYTOLYTIC HEPATITIS [None]
  - TOXIC SKIN ERUPTION [None]
